FAERS Safety Report 21858482 (Version 4)
Quarter: 2023Q2

REPORT INFORMATION
  Report Type: Spontaneous
  Country: US (occurrence: US)
  Receive Date: 20230113
  Receipt Date: 20230414
  Transmission Date: 20230722
  Serious: Yes (Hospitalization)
  Sender: FDA-Public Use
  Company Number: US-JNJFOC-20230114935

PATIENT
  Age: 50 Year
  Sex: Female

DRUGS (18)
  1. TREMFYA [Suspect]
     Active Substance: GUSELKUMAB
     Indication: Psoriatic arthropathy
     Route: 065
     Dates: start: 20230103
  2. TREMFYA [Suspect]
     Active Substance: GUSELKUMAB
     Indication: Psoriasis
  3. ORACEA [DOXYCYCLINE] [Concomitant]
  4. GABAPENTIN [Concomitant]
     Active Substance: GABAPENTIN
     Indication: Muscle spasms
     Dosage: AT BEDTIME
  5. EUCERIN [PARAFFIN, LIQUID;PETROLATUM;WOOL FAT] [Concomitant]
     Indication: Product used for unknown indication
  6. CETAPHIL [BUTYL HYDROXYBENZOATE;CETYL ALCOHOL;PROPYLENE GLYCOL;SODIUM [Concomitant]
     Indication: Rosacea
     Dosage: TWICE DAILY
  7. PLEXION [EPERISONE HYDROCHLORIDE] [Concomitant]
     Indication: Rosacea
  8. DESOXIMETASONE [Concomitant]
     Active Substance: DESOXIMETASONE
     Indication: Psoriasis
  9. FOLIC ACID [Concomitant]
     Active Substance: FOLIC ACID
     Indication: Product used for unknown indication
     Dosage: 1,333 MCG ONCE DAILY.
  10. ATIVAN [Concomitant]
     Active Substance: LORAZEPAM
  11. SODIUM CHLORIDE [Concomitant]
     Active Substance: SODIUM CHLORIDE
     Indication: Product used for unknown indication
  12. THIAMINE [Concomitant]
     Active Substance: THIAMINE
     Dosage: ONCE DAILY IN MORNING
  13. MAGNESIUM OXIDE [Concomitant]
     Active Substance: MAGNESIUM OXIDE
     Dosage: ONCE DAILY
  14. CALCIUM\CHOLECALCIFEROL [Concomitant]
     Active Substance: CALCIUM\CHOLECALCIFEROL
  15. CLOBETASOL PROPIONATE [Concomitant]
     Active Substance: CLOBETASOL PROPIONATE
     Indication: Psoriasis
     Dosage: TWICE DAILY  TWO WEEKS PER MONTH
  16. MUPIROCIN [Concomitant]
     Active Substance: MUPIROCIN
     Indication: Psoriasis
     Dosage: TWICE DAILY   TWO WEEKS PER MONTH
  17. MODERNA COVID-19 VACCINE [Concomitant]
     Active Substance: ELASOMERAN
     Indication: COVID-19 prophylaxis
     Dates: start: 20210408
  18. MODERNA COVID-19 VACCINE [Concomitant]
     Active Substance: ELASOMERAN
     Dates: start: 20210922

REACTIONS (7)
  - Hypertension [Unknown]
  - Gastroenteritis viral [Unknown]
  - Fatigue [Unknown]
  - Hypersomnia [Unknown]
  - Pain [Unknown]
  - Rosacea [Unknown]
  - Peripheral swelling [Unknown]

NARRATIVE: CASE EVENT DATE: 20230101
